FAERS Safety Report 6523969-8 (Version None)
Quarter: 2009Q4

REPORT INFORMATION
  Report Type: 
  Country: None (occurrence: None)
  Receive Date: 20091230
  Receipt Date: 20091230
  Transmission Date: 20100525
  Serious: Yes (Hospitalization)
  Sender: FDA-Public Use
  Company Number: None

PATIENT
  Sex: Female
  Weight: 68 kg

DRUGS (1)
  1. HEPARIN [Suspect]
     Indication: PERIPHERAL ISCHAEMIA
     Dosage: 1050 UNITS/HR    IV DRIP
     Route: 041
     Dates: start: 20091208, end: 20091213

REACTIONS (5)
  - BRAIN OEDEMA [None]
  - CEREBELLAR HAEMORRHAGE [None]
  - INTRACRANIAL PRESSURE INCREASED [None]
  - PHOTOPHOBIA [None]
  - VISUAL IMPAIRMENT [None]
